FAERS Safety Report 23291602 (Version 1)
Quarter: 2023Q4

REPORT INFORMATION
  Report Type: Other
  Country: RS (occurrence: RS)
  Receive Date: 20231213
  Receipt Date: 20231213
  Transmission Date: 20240110
  Serious: Yes (Hospitalization)
  Sender: FDA-Public Use
  Company Number: RS-BoehringerIngelheim-2023-BI-276460

PATIENT
  Age: 70 Year
  Sex: Male

DRUGS (1)
  1. ALTEPLASE [Suspect]
     Active Substance: ALTEPLASE
     Indication: Pulmonary embolism
     Dosage: ALTEPLASE WAS ADMINISTERED ACCORDING TO A TWO-HOUR PROTOCOL
     Route: 065
     Dates: start: 202002

REACTIONS (1)
  - Pneumonia viral [Unknown]
